FAERS Safety Report 8637747 (Version 2)
Quarter: 2013Q1

REPORT INFORMATION
  Report Type: Spontaneous
  Country: US (occurrence: US)
  Receive Date: 20120627
  Receipt Date: 20130122
  Transmission Date: 20140127
  Serious: Yes (Hospitalization)
  Sender: FDA-Public Use
  Company Number: US-BAYER-2012-061933

PATIENT
  Age: 39 Year
  Sex: Female
  Weight: 82 kg

DRUGS (7)
  1. YAZ [Suspect]
     Indication: CONTRACEPTION
     Dosage: UNK
  2. YAZ [Suspect]
     Indication: ACNE
  3. YASMIN [Suspect]
     Indication: CONTRACEPTION
     Dosage: UNK
  4. YASMIN [Suspect]
     Indication: ACNE
  5. OCELLA [Suspect]
     Indication: ACNE
     Dosage: UNK
  6. MULTIVITAMINS [Concomitant]
  7. KEPPRA [Concomitant]
     Indication: SIMPLE PARTIAL SEIZURES
     Dosage: UNK UNK, BID

REACTIONS (4)
  - Intracranial venous sinus thrombosis [None]
  - Injury [None]
  - Pain [None]
  - Pain [None]
